FAERS Safety Report 10441448 (Version 2)
Quarter: 2014Q3

REPORT INFORMATION
  Report Type: Spontaneous
  Country: DE (occurrence: DE)
  Receive Date: 20140909
  Receipt Date: 20140916
  Transmission Date: 20150326
  Serious: No
  Sender: FDA-Public Use
  Company Number: DE-SA-2014SA120969

PATIENT
  Age: 59 Year
  Sex: Female

DRUGS (5)
  1. INSUMAN BASAL [Concomitant]
     Indication: DIABETES MELLITUS
     Route: 030
  2. APIDRA [Concomitant]
     Active Substance: INSULIN GLULISINE
     Indication: DIABETES MELLITUS
     Route: 030
  3. SIMVASTATIN. [Concomitant]
     Active Substance: SIMVASTATIN
     Indication: HYPERCHOLESTEROLAEMIA
     Route: 048
  4. L-THYROXIN [Concomitant]
     Active Substance: LEVOTHYROXINE SODIUM
     Indication: HYPOTHYROIDISM
     Route: 048
  5. IRBESARTAN HYDROCHLOROTHIAZIDE ZENTIVA [Suspect]
     Active Substance: HYDROCHLOROTHIAZIDE\IRBESARTAN
     Indication: HYPERTENSION
     Dosage: STRENGTH:150/12.5 MG?DOSE:150/12.5 MG?DAILY DOSE:150/12.5 MG
     Route: 048
     Dates: start: 20140822, end: 20140823

REACTIONS (2)
  - Malaise [Recovered/Resolved]
  - Blood pressure increased [Recovered/Resolved]

NARRATIVE: CASE EVENT DATE: 20140822
